FAERS Safety Report 7434052-1 (Version None)
Quarter: 2011Q2

REPORT INFORMATION
  Report Type: 
  Country: None (occurrence: None)
  Receive Date: 20110421
  Receipt Date: 20110421
  Transmission Date: 20111010
  Serious: Yes (Life-Threatening)
  Sender: FDA-Public Use
  Company Number: None

PATIENT
  Age: 68 Year
  Sex: Female

DRUGS (1)
  1. GLYBURIDE AND METFORMIN HYDROCHLORIDE [Suspect]
     Dosage: 5/500MG TID PO
     Route: 048

REACTIONS (2)
  - PRODUCT LABEL ISSUE [None]
  - MEDICATION ERROR [None]
